FAERS Safety Report 8265380-8 (Version None)
Quarter: 2012Q2

REPORT INFORMATION
  Report Type: 
  Country: None (occurrence: None)
  Receive Date: 20120406
  Receipt Date: 20120322
  Transmission Date: 20120825
  Serious: Yes (Other)
  Sender: FDA-Public Use
  Company Number: GB-WATSON-2012-05994

PATIENT
  Age: 71 Year
  Sex: Male

DRUGS (2)
  1. SIMVASTATIN [Suspect]
     Indication: PRODUCT USED FOR UNKNOWN INDICATION
     Dosage: 40 MG, UNK
     Route: 065
  2. CYPROTERONE (UNKNOWN) [Suspect]
     Indication: ADENOCARCINOMA
     Dosage: 300 MG, UNKNOWN
     Route: 065
     Dates: start: 20110601

REACTIONS (4)
  - RHABDOMYOLYSIS [None]
  - BLOOD CREATININE INCREASED [None]
  - DRUG INTERACTION [None]
  - LIVER FUNCTION TEST ABNORMAL [None]
